FAERS Safety Report 10773073 (Version 1)
Quarter: 2015Q1

REPORT INFORMATION
  Report Type: Report from Study
  Country: JP (occurrence: JP)
  Receive Date: 20150207
  Receipt Date: 20150207
  Transmission Date: 20150721
  Serious: Yes (Hospitalization, Other)
  Sender: FDA-Public Use
  Company Number: PHJP2015JP001372

PATIENT
  Age: 75 Year
  Sex: Male
  Weight: 63 kg

DRUGS (22)
  1. MYONAL [Suspect]
     Active Substance: EPERISONE HYDROCHLORIDE
     Indication: MIGRAINE
     Dosage: 150 MG, UNK
     Route: 048
     Dates: start: 20141225, end: 20150115
  2. LUPRAC [Suspect]
     Active Substance: TORSEMIDE
     Indication: CARDIAC FAILURE
     Dosage: 12 MG, UNK
     Route: 048
     Dates: start: 20141222
  3. NEXIUM [Suspect]
     Active Substance: ESOMEPRAZOLE MAGNESIUM
     Indication: PROPHYLAXIS AGAINST GASTROINTESTINAL ULCER
     Dosage: 20 MG, QD
     Route: 048
     Dates: start: 20141216
  4. RLX030 [Suspect]
     Active Substance: SERELAXIN
     Indication: CARDIAC FAILURE ACUTE
     Dosage: 30 UG/KG, UNK
     Route: 041
     Dates: start: 20141216, end: 20141218
  5. SLOW-K TAB [Suspect]
     Active Substance: POTASSIUM CHLORIDE
     Indication: HYPOKALAEMIA
     Dosage: 2400 MG, UNK
     Route: 048
     Dates: start: 20141220
  6. MAINTATE [Suspect]
     Active Substance: BISOPROLOL FUMARATE
     Indication: CARDIAC FAILURE
     Dosage: 4.375 MG, UNK
     Route: 048
     Dates: start: 20141222
  7. ENALAPRIL MALEATE. [Suspect]
     Active Substance: ENALAPRIL MALEATE
     Indication: CARDIAC FAILURE
     Dosage: 2.5 MG, QD
     Route: 048
     Dates: start: 20141216
  8. ETIZOLAM [Suspect]
     Active Substance: ETIZOLAM
     Indication: MIGRAINE
     Dosage: 1.5 MG, UNK
     Route: 048
     Dates: start: 20141225, end: 20150115
  9. TRAZENTA [Suspect]
     Active Substance: LINAGLIPTIN
     Indication: DIABETES MELLITUS
     Dosage: 5 MG, QD
     Route: 048
     Dates: start: 20141228
  10. SPIRONOLACTONE. [Suspect]
     Active Substance: SPIRONOLACTONE
     Indication: CARDIAC FAILURE
     Dosage: 25 MG, QD
     Route: 048
     Dates: start: 20150116
  11. RINDERON V [Suspect]
     Active Substance: BETAMETHASONE VALERATE
     Indication: ECZEMA
     Dosage: UNK
     Route: 062
     Dates: start: 20150114
  12. DIOVAN [Concomitant]
     Active Substance: VALSARTAN
     Indication: HYPERTENSION
     Dosage: UNK
     Route: 065
     Dates: end: 20141216
  13. AZILVA [Suspect]
     Active Substance: AZILSARTAN KAMEDOXOMIL
     Indication: HYPERTENSION
     Dosage: 40 MG, UNK
     Route: 048
     Dates: start: 20141216
  14. NIFEDIPINE. [Suspect]
     Active Substance: NIFEDIPINE
     Indication: HYPERTENSION
     Dosage: 80 MG, UNK
     Route: 048
     Dates: start: 20141216
  15. SELARA [Suspect]
     Active Substance: EPLERENONE
     Indication: CARDIAC FAILURE
     Dosage: 25 MG, QD
     Route: 048
     Dates: start: 20150108, end: 20150115
  16. SELARA [Suspect]
     Active Substance: EPLERENONE
     Indication: HYPOKALAEMIA
  17. CARDENALIN [Suspect]
     Active Substance: DOXAZOSIN MESYLATE
     Indication: HYPERTENSION
     Dosage: 2 MG, UNK
     Route: 048
     Dates: start: 20150106
  18. HIRUDOID//HEPARINOID [Suspect]
     Active Substance: GLYCOSAMINOGLYCANS
     Indication: ECZEMA
     Dosage: UNK
     Route: 062
     Dates: start: 20150114
  19. HUMALOG [Suspect]
     Active Substance: INSULIN LISPRO
     Indication: DIABETES MELLITUS
     Dosage: UNK
     Route: 058
     Dates: start: 20141218
  20. LANTUS [Suspect]
     Active Substance: INSULIN GLARGINE
     Indication: DIABETES MELLITUS
     Dosage: UNK
     Route: 058
     Dates: start: 20141218
  21. VOGLIBOSE [Suspect]
     Active Substance: VOGLIBOSE
     Indication: DIABETES MELLITUS
     Dosage: 0.9 MG, TID
     Route: 048
     Dates: start: 20141224
  22. FRANDOL [Suspect]
     Active Substance: ISOSORBIDE DINITRATE
     Indication: HYPERTENSION
     Dosage: 40 MG, QD
     Route: 062
     Dates: start: 20141224

REACTIONS (4)
  - Anisocytosis [None]
  - Dizziness [None]
  - Myelofibrosis [Unknown]
  - Poikilocytosis [None]

NARRATIVE: CASE EVENT DATE: 20150115
